FAERS Safety Report 8560190 (Version 8)
Quarter: 2013Q1

REPORT INFORMATION
  Report Type: Report from Study
  Country: CA (occurrence: CA)
  Receive Date: 20120514
  Receipt Date: 20130121
  Transmission Date: 20140127
  Serious: Yes (Other)
  Sender: FDA-Public Use
  Company Number: CA-ABBOTT-12P-028-0920323-00

PATIENT
  Sex: Female
  Weight: 59.5 kg

DRUGS (3)
  1. HUMIRA 40 MG/ 0.8 ML PRE-FILLED SYRINGE [Suspect]
     Indication: CROHN^S DISEASE
     Route: 058
     Dates: start: 20110603, end: 20120403
  2. HUMIRA 40 MG/ 0.8 ML PRE-FILLED SYRINGE [Suspect]
     Route: 058
     Dates: start: 20120514
  3. THIOPURINES [Concomitant]
     Indication: PRODUCT USED FOR UNKNOWN INDICATION

REACTIONS (5)
  - Fallopian tube disorder [Recovering/Resolving]
  - Inflammation [Recovering/Resolving]
  - Cholecystectomy [Recovering/Resolving]
  - Vesical fistula [Unknown]
  - Hypoaesthesia [Unknown]
